FAERS Safety Report 11584621 (Version 2)
Quarter: 2015Q4

REPORT INFORMATION
  Report Type: Report from Study
  Country: US (occurrence: US)
  Receive Date: 20151001
  Receipt Date: 20151012
  Transmission Date: 20160304
  Serious: Yes (Other)
  Sender: FDA-Public Use
  Company Number: US-AMGEN-USASP2015101032

PATIENT
  Age: 51 Year
  Sex: Male

DRUGS (4)
  1. ENBREL [Suspect]
     Active Substance: ETANERCEPT
     Indication: PSORIATIC ARTHROPATHY
     Dosage: 50 MG, QWK
     Route: 065
  2. ENBREL [Suspect]
     Active Substance: ETANERCEPT
     Indication: PSORIASIS
     Dosage: 50 MG, QWK
     Route: 065
     Dates: start: 201501, end: 201505
  3. HUMIRA [Concomitant]
     Active Substance: ADALIMUMAB
  4. ENBREL [Suspect]
     Active Substance: ETANERCEPT
     Dosage: 50 MG, QWK
     Route: 065
     Dates: start: 20150825

REACTIONS (7)
  - Mobility decreased [Unknown]
  - Pain in extremity [Unknown]
  - Injection site pain [Unknown]
  - Shoulder operation [Unknown]
  - Exostosis [Unknown]
  - Meniscus injury [Unknown]
  - Ligament rupture [Unknown]

NARRATIVE: CASE EVENT DATE: 20150825
